FAERS Safety Report 23281719 (Version 1)
Quarter: 2023Q4

REPORT INFORMATION
  Report Type: Spontaneous
  Country: FR (occurrence: FR)
  Receive Date: 20231211
  Receipt Date: 20231211
  Transmission Date: 20240110
  Serious: Yes (Hospitalization)
  Sender: FDA-Public Use
  Company Number: None

PATIENT
  Age: 76 Year
  Sex: Male
  Weight: 85 kg

DRUGS (5)
  1. DALBAVANCIN [Suspect]
     Active Substance: DALBAVANCIN
     Indication: Osteitis
     Route: 042
     Dates: start: 20231017, end: 20231017
  2. DALBAVANCIN [Suspect]
     Active Substance: DALBAVANCIN
     Indication: Osteitis
     Route: 042
     Dates: start: 20231031, end: 20231031
  3. DALBAVANCIN [Suspect]
     Active Substance: DALBAVANCIN
     Indication: Osteitis
     Route: 042
     Dates: start: 20231128, end: 20231128
  4. XARELTO [Concomitant]
     Active Substance: RIVAROXABAN
     Indication: Product used for unknown indication
  5. PRISTINAMYCIN [Concomitant]
     Active Substance: PRISTINAMYCIN
     Indication: Product used for unknown indication

REACTIONS (1)
  - Urticaria [Recovered/Resolved]

NARRATIVE: CASE EVENT DATE: 20231128
